FAERS Safety Report 5852240-2 (Version None)
Quarter: 2008Q3

REPORT INFORMATION
  Report Type: 
  Country: None (occurrence: None)
  Receive Date: 20080820
  Receipt Date: 20080820
  Transmission Date: 20090109
  Serious: No
  Sender: FDA-Public Use
  Company Number: None

PATIENT
  Sex: Female

DRUGS (1)
  1. PROMETHAZINE [Suspect]
     Dosage: INJECTABLE

REACTIONS (5)
  - INFUSION SITE EXTRAVASATION [None]
  - INFUSION SITE PAIN [None]
  - INFUSION SITE SWELLING [None]
  - MEDICATION ERROR [None]
  - OEDEMA PERIPHERAL [None]
